FAERS Safety Report 9424663 (Version 2)
Quarter: 2013Q4

REPORT INFORMATION
  Report Type: Spontaneous
  Country: NL (occurrence: NL)
  Receive Date: 20130725
  Receipt Date: 20131018
  Transmission Date: 20140711
  Serious: Yes (Death, Life-Threatening, Hospitalization)
  Sender: FDA-Public Use
  Company Number: AUR-APL-2013-06100

PATIENT
  Age: 58 Year
  Sex: Female

DRUGS (8)
  1. AMOXICILLIN [Suspect]
     Indication: ABSCESS
  2. PIPERACILLIN + TAZOBACTAM [Suspect]
     Indication: ABSCESS
  3. CEFUROXIME [Suspect]
     Indication: ABSCESS
  4. CIPROFLOXACIN [Suspect]
     Indication: ABSCESS
  5. LINEZOLID [Suspect]
     Indication: PRODUCT USED FOR UNKNOWN INDICATION
  6. METRONIDAZOLE [Suspect]
     Indication: ABSCESS
  7. COTRIMOXAZOLE [Suspect]
     Indication: ABSCESS
  8. VANCOMYCIN [Suspect]
     Indication: ABSCESS

REACTIONS (14)
  - Hypotension [None]
  - Oliguria [None]
  - Respiratory failure [None]
  - Drug hypersensitivity [None]
  - Metabolic acidosis [None]
  - Haemoglobin decreased [None]
  - Haematocrit decreased [None]
  - Hypoxia [None]
  - Septic shock [None]
  - Pneumonia [None]
  - Renal failure [None]
  - Continuous haemodiafiltration [None]
  - Livedo reticularis [None]
  - Drug reaction with eosinophilia and systemic symptoms [None]
